FAERS Safety Report 19217101 (Version 1)
Quarter: 2021Q2

REPORT INFORMATION
  Report Type: Spontaneous
  Country: US (occurrence: US)
  Receive Date: 20210505
  Receipt Date: 20210505
  Transmission Date: 20210717
  Serious: No
  Sender: FDA-Public Use
  Company Number: US-JNJFOC-20210428232

PATIENT
  Age: 35 Year
  Sex: Male

DRUGS (12)
  1. TYLENOL [Suspect]
     Active Substance: ACETAMINOPHEN
     Indication: PAIN
  2. TYLENOL [Suspect]
     Active Substance: ACETAMINOPHEN
     Indication: CHEST DISCOMFORT
  3. TYLENOL [Suspect]
     Active Substance: ACETAMINOPHEN
     Indication: FEELING ABNORMAL
  4. TYLENOL [Suspect]
     Active Substance: ACETAMINOPHEN
     Indication: VISION BLURRED
  5. TYLENOL [Suspect]
     Active Substance: ACETAMINOPHEN
     Indication: PAIN
  6. TYLENOL [Suspect]
     Active Substance: ACETAMINOPHEN
     Indication: FATIGUE
     Route: 065
     Dates: start: 202104
  7. TYLENOL [Suspect]
     Active Substance: ACETAMINOPHEN
     Indication: HYPOTENSION
  8. TYLENOL [Suspect]
     Active Substance: ACETAMINOPHEN
     Indication: RENAL PAIN
  9. TYLENOL [Suspect]
     Active Substance: ACETAMINOPHEN
     Indication: DIZZINESS
  10. TYLENOL [Suspect]
     Active Substance: ACETAMINOPHEN
     Indication: HEADACHE
  11. TYLENOL [Suspect]
     Active Substance: ACETAMINOPHEN
     Indication: NAUSEA
  12. COVID?19 VACCINE NOS. [Concomitant]
     Active Substance: COVID-19 VACCINE NOS
     Indication: PRODUCT USED FOR UNKNOWN INDICATION
     Route: 065
     Dates: start: 20210409

REACTIONS (1)
  - Product use in unapproved indication [Unknown]

NARRATIVE: CASE EVENT DATE: 202104
